FAERS Safety Report 6153431-6 (Version None)
Quarter: 2009Q2

REPORT INFORMATION
  Report Type: 
  Country: None (occurrence: None)
  Receive Date: 20090409
  Receipt Date: 20090409
  Transmission Date: 20091009
  Serious: Yes (Life-Threatening, Hospitalization)
  Sender: FDA-Public Use
  Company Number: None

PATIENT
  Sex: Female
  Weight: 50.8029 kg

DRUGS (1)
  1. CEFADROXIL [Suspect]
     Indication: LYMPHADENOPATHY
     Dosage: 500 BID PO
     Route: 048
     Dates: start: 20080924, end: 20080925

REACTIONS (1)
  - GRAND MAL CONVULSION [None]
